FAERS Safety Report 7107031-1 (Version None)
Quarter: 2010Q4

REPORT INFORMATION
  Report Type: 
  Country: None (occurrence: None)
  Receive Date: 20101116
  Receipt Date: 20100927
  Transmission Date: 20110411
  Serious: No
  Sender: FDA-Public Use
  Company Number: US-ABBOTT-10P-163-0673472-00

PATIENT
  Sex: Male

DRUGS (7)
  1. SIMCOR [Suspect]
     Indication: PRODUCT USED FOR UNKNOWN INDICATION
     Dates: start: 20100901
  2. AMOXICILLIN [Concomitant]
     Indication: COUGH
  3. AMOXICILLIN [Concomitant]
     Indication: PHARYNGITIS
  4. AMOXICILLIN [Concomitant]
     Indication: SINUSITIS
  5. UNKNOWN MEDICATION [Concomitant]
     Indication: COUGH
  6. UNKNOWN MEDICATION [Concomitant]
     Indication: PHARYNGITIS
  7. UNKNOWN MEDICATION [Concomitant]
     Indication: SINUSITIS

REACTIONS (3)
  - FATIGUE [None]
  - SEXUAL DYSFUNCTION [None]
  - SOMNOLENCE [None]
